FAERS Safety Report 5734873-7 (Version None)
Quarter: 2008Q2

REPORT INFORMATION
  Report Type: 
  Country: None (occurrence: None)
  Receive Date: 20080512
  Receipt Date: 20080501
  Transmission Date: 20081010
  Serious: Yes (Other)
  Sender: FDA-Public Use
  Company Number: B0359804A

PATIENT
  Sex: Female

DRUGS (12)
  1. PAROXETINE HCL [Suspect]
     Route: 065
     Dates: start: 19980526
  2. DIAZEPAM [Concomitant]
     Route: 065
     Dates: start: 20000919
  3. LUSTRAL [Concomitant]
     Route: 065
     Dates: start: 20010411
  4. DULOXETINE [Concomitant]
     Route: 065
  5. HRT [Concomitant]
  6. NICOTINE [Concomitant]
  7. TESTOSTERONE [Concomitant]
     Dates: start: 20000510, end: 20001101
  8. SERTRALINE [Concomitant]
  9. REBOXETINE [Concomitant]
     Dates: start: 20020524
  10. SIMVASTATIN [Concomitant]
     Dates: start: 20060301
  11. DOMPERIDONE [Concomitant]
     Dates: start: 20060901
  12. ESOMEPRAZOLE [Concomitant]
     Dates: start: 20060901

REACTIONS (9)
  - ABNORMAL BEHAVIOUR [None]
  - AGGRESSION [None]
  - DEPRESSED MOOD [None]
  - FATIGUE [None]
  - GASTROOESOPHAGEAL REFLUX DISEASE [None]
  - NERVOUSNESS [None]
  - SELF-INJURIOUS IDEATION [None]
  - SUICIDAL IDEATION [None]
  - WITHDRAWAL SYNDROME [None]
